FAERS Safety Report 18393070 (Version 4)
Quarter: 2021Q4

REPORT INFORMATION
  Report Type: Report from Study
  Country: US (occurrence: US)
  Receive Date: 20201016
  Receipt Date: 20211115
  Transmission Date: 20220303
  Serious: Yes (Other)
  Sender: FDA-Public Use
  Company Number: NVSC2019US086950

PATIENT
  Age: 7 Month
  Sex: Male
  Weight: 7.7 kg

DRUGS (13)
  1. ZOLGENSMA [Suspect]
     Active Substance: ONASEMNOGENE ABEPARVOVEC-XIOI
     Indication: Spinal muscular atrophy
     Dosage: 44.00 ML, ONCE/SINGLE (8.8 E14 VG, 1.1 X E14VG/KG)
     Route: 042
     Dates: start: 20190529
  2. PREDNISOLONE [Concomitant]
     Active Substance: PREDNISOLONE
     Indication: Prophylaxis
     Dosage: 15 MG, QD (2.5 MG/ML)
     Route: 048
     Dates: start: 20190518, end: 20190601
  3. PREDNISOLONE [Concomitant]
     Active Substance: PREDNISOLONE
     Dosage: 15 ML (2.5 MG/ML)
     Route: 065
     Dates: start: 20190528, end: 20190531
  4. PREDNISOLONE [Concomitant]
     Active Substance: PREDNISOLONE
     Dosage: 1.92 MG
     Route: 065
     Dates: start: 20190528, end: 20190531
  5. PREDNISOLONE [Concomitant]
     Active Substance: PREDNISOLONE
     Dosage: 0.96 MG
     Route: 065
     Dates: start: 20190531, end: 20190702
  6. PREDNISOLONE [Concomitant]
     Active Substance: PREDNISOLONE
     Dosage: 7.5 MG, QD
     Route: 048
     Dates: start: 20190601
  7. PREDNISOLONE [Concomitant]
     Active Substance: PREDNISOLONE
     Dosage: 0.77 MG
     Route: 065
     Dates: start: 20190702, end: 20190709
  8. PREDNISOLONE [Concomitant]
     Active Substance: PREDNISOLONE
     Dosage: 0.58 MG
     Route: 065
     Dates: start: 20190709, end: 20190716
  9. PREDNISOLONE [Concomitant]
     Active Substance: PREDNISOLONE
     Dosage: 0.38 MG/KG
     Route: 065
     Dates: start: 20190716, end: 20190723
  10. PREDNISOLONE [Concomitant]
     Active Substance: PREDNISOLONE
     Dosage: 0.19 MG/KG
     Route: 065
     Dates: start: 20190723, end: 20190730
  11. FAMOTIDINE [Concomitant]
     Active Substance: FAMOTIDINE
     Indication: Product used for unknown indication
     Dosage: 4 MG, QD
     Route: 048
  12. CHOLECALCIFEROL [Concomitant]
     Active Substance: CHOLECALCIFEROL
     Indication: Product used for unknown indication
     Dosage: 400 IU, QD
     Route: 048
  13. ALBUTEROL [Concomitant]
     Active Substance: ALBUTEROL
     Indication: Product used for unknown indication
     Dosage: 2.50 MG, BID
     Route: 065

REACTIONS (8)
  - Thrombocytopenia [Recovered/Resolved]
  - Aspiration [Recovered/Resolved]
  - Aspartate aminotransferase increased [Recovered/Resolved]
  - Alanine aminotransferase increased [Recovered/Resolved]
  - Alanine aminotransferase increased [Recovered/Resolved]
  - Vomiting [Recovered/Resolved]
  - Dysphagia [Not Recovered/Not Resolved]
  - Joint contracture [Not Recovered/Not Resolved]

NARRATIVE: CASE EVENT DATE: 20190530
